FAERS Safety Report 4865524-1 (Version None)
Quarter: 2005Q4

REPORT INFORMATION
  Report Type: 
  Country: None (occurrence: None)
  Receive Date: 20051219
  Receipt Date: 20051128
  Transmission Date: 20060501
  Serious: Yes (Hospitalization)
  Sender: FDA-Public Use
  Company Number: 220234

PATIENT
  Age: 72 Year
  Sex: Female

DRUGS (7)
  1. AVASTIN [Suspect]
     Indication: COLORECTAL CANCER METASTATIC
     Dosage: 350 MG, Q3W, INTRAVENOUS
     Route: 042
     Dates: start: 20050923
  2. CAPECITABINE (CAPECITABINE) [Suspect]
     Indication: COLORECTAL CANCER METASTATIC
     Dosage: 1300 MG, BID, D1 4, ORAL
     Route: 048
     Dates: start: 20050923
  3. OXALIPLATIN (OXALIPLATIN) [Suspect]
     Indication: COLORECTAL CANCER METASTATIC
     Dosage: 100 MG, Q3W, INTRAVENOUS
     Route: 042
     Dates: start: 20050923
  4. ENALAPRIL MALEATE [Concomitant]
  5. HYDROCHLOROTHIAZIDE [Concomitant]
  6. DEXAMETHASONE [Concomitant]
  7. CLEMASTIN (CLEMASTINE) [Concomitant]

REACTIONS (4)
  - DIZZINESS [None]
  - DYSPNOEA [None]
  - SPEECH DISORDER [None]
  - STRIDOR [None]
